FAERS Safety Report 20686624 (Version 1)
Quarter: 2022Q2

REPORT INFORMATION
  Report Type: Spontaneous
  Country: US (occurrence: US)
  Receive Date: 20220407
  Receipt Date: 20220407
  Transmission Date: 20220721
  Serious: No
  Sender: FDA-Public Use
  Company Number: US-SA-SAC20220405000225

PATIENT
  Sex: Male

DRUGS (4)
  1. DUPIXENT [Suspect]
     Active Substance: DUPILUMAB
     Indication: Dermatitis atopic
     Dosage: 300 MG, QOW
     Route: 058
     Dates: start: 20220101
  2. SIMVASTATIN [Concomitant]
     Active Substance: SIMVASTATIN
  3. AMLODIPINE;ATORVASTATIN [Concomitant]
  4. MELOXICAM [Concomitant]
     Active Substance: MELOXICAM

REACTIONS (2)
  - Hypoaesthesia [Unknown]
  - Herpes zoster [Recovering/Resolving]
